FAERS Safety Report 12594470 (Version 1)
Quarter: 2016Q3

REPORT INFORMATION
  Report Type: Spontaneous
  Country: ES (occurrence: ES)
  Receive Date: 20160726
  Receipt Date: 20160726
  Transmission Date: 20161109
  Serious: Yes (Other)
  Sender: FDA-Public Use
  Company Number: ES-AUROBINDO-AUR-APL-2016-09547

PATIENT

DRUGS (6)
  1. VALPROIC ACID. [Interacting]
     Active Substance: VALPROIC ACID
     Indication: PRODUCT USED FOR UNKNOWN INDICATION
     Dosage: 800 MG, DAILY
     Route: 065
  2. IBUPROFEN. [Interacting]
     Active Substance: IBUPROFEN
     Dosage: 1200 MG, DAILY
     Route: 065
  3. IBUPROFEN. [Interacting]
     Active Substance: IBUPROFEN
     Dosage: 1800 MG, DAILY
     Route: 065
  4. RISPERIDONE. [Concomitant]
     Active Substance: RISPERIDONE
     Indication: PRODUCT USED FOR UNKNOWN INDICATION
     Dosage: 50 MG EVERY 2 WEEKS
     Route: 030
  5. IBUPROFEN. [Suspect]
     Active Substance: IBUPROFEN
     Indication: BRONCHITIS
     Dosage: 1200 MG, DAILY
     Route: 065
  6. CLOZAPINE. [Interacting]
     Active Substance: CLOZAPINE
     Indication: PRODUCT USED FOR UNKNOWN INDICATION
     Dosage: 600 MG, DAILY
     Route: 065

REACTIONS (3)
  - Drug interaction [Unknown]
  - Off label use [Unknown]
  - Drug level below therapeutic [Unknown]
